FAERS Safety Report 5336552-7 (Version None)
Quarter: 2007Q1

REPORT INFORMATION
  Report Type: 
  Country: None (occurrence: None)
  Receive Date: 20070315
  Receipt Date: 20070108
  Transmission Date: 20070707
  Serious: Yes (Hospitalization, Disabling, Other)
  Sender: FDA-Public Use
  Company Number: PHEH2007US00680

PATIENT
  Age: 41 Year
  Sex: Male

DRUGS (1)
  1. TRILEPTAL [Suspect]

REACTIONS (12)
  - ANXIETY [None]
  - ASTHENIA [None]
  - DECREASED ACTIVITY [None]
  - DECREASED INTEREST [None]
  - DISABILITY [None]
  - EMOTIONAL DISTRESS [None]
  - FEAR [None]
  - MALAISE [None]
  - PAIN [None]
  - RASH GENERALISED [None]
  - SCAR [None]
  - STEVENS-JOHNSON SYNDROME [None]
